FAERS Safety Report 13268417 (Version 1)
Quarter: 2017Q1

REPORT INFORMATION
  Report Type: Spontaneous
  Country: US (occurrence: US)
  Receive Date: 20170224
  Receipt Date: 20170224
  Transmission Date: 20170428
  Serious: No
  Sender: FDA-Public Use
  Company Number: US-WEST-WARD PHARMACEUTICALS CORP.-US-H14001-16-02196

PATIENT
  Sex: Male

DRUGS (9)
  1. DURAMORPH [Suspect]
     Active Substance: MORPHINE SULFATE
     Indication: SPINAL PAIN
  2. CLONIDINE. [Suspect]
     Active Substance: CLONIDINE
     Indication: INTERVERTEBRAL DISC DEGENERATION
     Route: 037
  3. CLONIDINE. [Suspect]
     Active Substance: CLONIDINE
     Indication: STENOSIS
  4. DILAUDID [Suspect]
     Active Substance: HYDROMORPHONE HYDROCHLORIDE
     Indication: SPINAL PAIN
  5. DILAUDID [Suspect]
     Active Substance: HYDROMORPHONE HYDROCHLORIDE
     Indication: STENOSIS
  6. DURAMORPH [Suspect]
     Active Substance: MORPHINE SULFATE
     Indication: INTERVERTEBRAL DISC DEGENERATION
     Route: 037
  7. DILAUDID [Suspect]
     Active Substance: HYDROMORPHONE HYDROCHLORIDE
     Indication: INTERVERTEBRAL DISC DEGENERATION
     Route: 037
  8. CLONIDINE. [Suspect]
     Active Substance: CLONIDINE
     Indication: SPINAL PAIN
  9. DURAMORPH [Suspect]
     Active Substance: MORPHINE SULFATE
     Indication: STENOSIS

REACTIONS (2)
  - Malaise [Recovered/Resolved]
  - Drug ineffective [Recovered/Resolved]

NARRATIVE: CASE EVENT DATE: 20120830
